FAERS Safety Report 9584888 (Version 1)
Quarter: 2013Q4

REPORT INFORMATION
  Report Type: Spontaneous
  Country: US (occurrence: US)
  Receive Date: 20131002
  Receipt Date: 20131002
  Transmission Date: 20140711
  Serious: No
  Sender: FDA-Public Use
  Company Number: US-AMGEN-USASP2013056238

PATIENT
  Age: 66 Year
  Sex: Female
  Weight: 70 kg

DRUGS (15)
  1. ENBREL [Suspect]
     Indication: RHEUMATOID ARTHRITIS
     Dosage: UNK
     Route: 065
     Dates: start: 200504, end: 201101
  2. ARAVA [Concomitant]
     Dosage: UNK
  3. RESTASIS [Concomitant]
     Dosage: UNK
  4. CLOBEX                             /00012002/ [Concomitant]
     Dosage: UNK
  5. SYNTHROID [Concomitant]
     Dosage: UNK
  6. POTASSIUM [Concomitant]
     Dosage: UNK
  7. ADVIL                              /00044201/ [Concomitant]
     Dosage: UNK
  8. PREVACID [Concomitant]
     Dosage: UNK
  9. VITAMIN D3 [Concomitant]
     Dosage: UNK
  10. HYDROCHLOROTHIAZIDE [Concomitant]
     Dosage: UNK
  11. CALCIUM CITRATE W/ MAGNESIUM [Concomitant]
     Dosage: UNK
  12. VALACYCLOVIR [Concomitant]
     Dosage: UNK
  13. CENTRUM                            /02217401/ [Concomitant]
     Dosage: UNK
  14. LUNESTA [Concomitant]
     Dosage: UNK
  15. GENTEAL                            /00445101/ [Concomitant]
     Dosage: UNK

REACTIONS (1)
  - Therapeutic response decreased [Not Recovered/Not Resolved]
